FAERS Safety Report 13286288 (Version 1)
Quarter: 2017Q1

REPORT INFORMATION
  Report Type: Spontaneous
  Country: US (occurrence: US)
  Receive Date: 20170302
  Receipt Date: 20170302
  Transmission Date: 20170428
  Serious: Yes (Other)
  Sender: FDA-Public Use
  Company Number: US-ALLERGAN-1000084194

PATIENT
  Age: 40 Year
  Sex: Female
  Weight: 54.55 kg

DRUGS (7)
  1. VIIBRYD [Suspect]
     Active Substance: VILAZODONE HYDROCHLORIDE
     Dosage: 35 MG, QD
     Route: 048
     Dates: start: 201602, end: 2016
  2. VIIBRYD [Suspect]
     Active Substance: VILAZODONE HYDROCHLORIDE
     Dosage: 25 MG, QD
     Route: 048
     Dates: start: 2016, end: 2016
  3. VIIBRYD [Suspect]
     Active Substance: VILAZODONE HYDROCHLORIDE
     Dosage: 30 MG, QD
     Route: 048
     Dates: start: 2016, end: 2016
  4. VIIBRYD [Suspect]
     Active Substance: VILAZODONE HYDROCHLORIDE
     Dosage: 20 MG, QD
     Route: 048
     Dates: start: 201603, end: 201603
  5. VALIUM [Concomitant]
     Active Substance: DIAZEPAM
     Dosage: 10 MG, BID
     Route: 048
     Dates: start: 2011
  6. VIIBRYD [Suspect]
     Active Substance: VILAZODONE HYDROCHLORIDE
     Dosage: 15 MG, QD
     Route: 048
     Dates: start: 201603, end: 201604
  7. VIIBRYD [Suspect]
     Active Substance: VILAZODONE HYDROCHLORIDE
     Indication: DEPRESSION
     Dosage: 40 MG, QD
     Route: 048
     Dates: start: 201601, end: 201602

REACTIONS (8)
  - Seizure [Recovered/Resolved]
  - Emotional distress [Recovered/Resolved]
  - Paraesthesia [Recovered/Resolved]
  - Confusional state [Recovered/Resolved]
  - Feeling abnormal [Recovered/Resolved]
  - Dizziness [Recovered/Resolved]
  - Off label use [Recovered/Resolved]
  - Drug ineffective [Recovered/Resolved]

NARRATIVE: CASE EVENT DATE: 2016
